FAERS Safety Report 8826468 (Version 5)
Quarter: 2013Q1

REPORT INFORMATION
  Report Type: Spontaneous
  Country: US (occurrence: US)
  Receive Date: 20121008
  Receipt Date: 20130118
  Transmission Date: 20140127
  Serious: Yes (Hospitalization, Other)
  Sender: FDA-Public Use
  Company Number: PHEH2012US019484

PATIENT
  Age: 65 Year
  Sex: Female

DRUGS (6)
  1. GILENYA [Suspect]
     Indication: MULTIPLE SCLEROSIS
     Dosage: 0.5 MG, QD
     Route: 048
     Dates: start: 20121002, end: 20121002
  2. REBIF [Suspect]
     Dosage: 44 UG, THREE IN ONE WEEK
     Route: 058
     Dates: start: 20081117, end: 20121001
  3. REBIF [Suspect]
     Dosage: UNK
     Dates: start: 20121005
  4. NEXIUM 1-2-3 [Concomitant]
  5. LISINOPRIL [Concomitant]
  6. CELEBREX [Concomitant]

REACTIONS (7)
  - Blood pressure abnormal [Recovered/Resolved]
  - Atrioventricular block first degree [Unknown]
  - Heart rate decreased [Unknown]
  - Cardiomyopathy [Recovering/Resolving]
  - Left ventricular hypertrophy [Unknown]
  - Hypertension [Recovering/Resolving]
  - Injection site discomfort [Not Recovered/Not Resolved]
